FAERS Safety Report 21710433 (Version 3)
Quarter: 2023Q1

REPORT INFORMATION
  Report Type: Spontaneous
  Country: US (occurrence: US)
  Receive Date: 20221211
  Receipt Date: 20230130
  Transmission Date: 20230417
  Serious: Yes (Hospitalization, Other)
  Sender: FDA-Public Use
  Company Number: US-BEH-2022152788

PATIENT
  Sex: Female

DRUGS (7)
  1. HUMATE-P [Suspect]
     Active Substance: HUMAN COAGULATION FACTOR VIII/VON WILLEBRAND FACTOR COMPLEX
     Indication: Von Willebrand^s disease
     Dosage: 2640 INTERNATIONAL UNIT, BIW
     Route: 042
     Dates: start: 202201
  2. HUMATE-P [Suspect]
     Active Substance: HUMAN COAGULATION FACTOR VIII/VON WILLEBRAND FACTOR COMPLEX
     Indication: Prophylaxis
     Dosage: 1990 INTERNATIONAL UNIT, QW
     Route: 042
     Dates: start: 20221201
  3. HUMATE-P [Suspect]
     Active Substance: HUMAN COAGULATION FACTOR VIII/VON WILLEBRAND FACTOR COMPLEX
     Dosage: 650 INTERNATIONAL UNIT, QW
     Route: 042
     Dates: start: 202201
  4. HUMATE-P [Suspect]
     Active Substance: HUMAN COAGULATION FACTOR VIII/VON WILLEBRAND FACTOR COMPLEX
     Dosage: 2640 INTERNATIONAL UNIT, BIW
     Route: 042
     Dates: start: 20220118
  5. XYZAL [Concomitant]
     Active Substance: LEVOCETIRIZINE DIHYDROCHLORIDE
     Indication: Hypersensitivity
  6. TYLENOL [Concomitant]
     Active Substance: ACETAMINOPHEN
     Dosage: UNK, PRN
  7. SODIUM CHLORIDE [Concomitant]
     Active Substance: SODIUM CHLORIDE

REACTIONS (7)
  - Sepsis [Unknown]
  - Mouth haemorrhage [Unknown]
  - Pharyngeal haemorrhage [Unknown]
  - COVID-19 [Unknown]
  - Loss of consciousness [Unknown]
  - Traumatic haemorrhage [Unknown]
  - Procedural haemorrhage [Recovered/Resolved]
